FAERS Safety Report 10619159 (Version 1)
Quarter: 2014Q4

REPORT INFORMATION
  Report Type: Spontaneous
  Country: GB (occurrence: None)
  Receive Date: 20141126
  Receipt Date: 20141126
  Transmission Date: 20150529
  Serious: Yes (Other)
  Sender: FDA-Public Use
  Company Number: GB-H14001-14-01666

PATIENT
  Age: 39 Year
  Sex: Female

DRUGS (3)
  1. FLUCLOXACILIN (FLUCLOXACILIN) [Concomitant]
  2. CO-AMOXICLAV [Suspect]
     Active Substance: AMOXICILLIN\CLAVULANIC ACID
     Indication: INFECTED BITES
     Route: 048
     Dates: start: 20141103, end: 20141107
  3. DIAZEPAM (DIAZEPAM) [Concomitant]
     Active Substance: DIAZEPAM

REACTIONS (1)
  - Depression [None]
